FAERS Safety Report 16292312 (Version 1)
Quarter: 2019Q2

REPORT INFORMATION
  Report Type: Report from Study
  Country: US (occurrence: US)
  Receive Date: 20190509
  Receipt Date: 20190509
  Transmission Date: 20190711
  Serious: Yes (Hospitalization, Other)
  Sender: FDA-Public Use
  Company Number: US-BAYER-2019-090014

PATIENT
  Sex: Female

DRUGS (4)
  1. NALOXONE [Suspect]
     Active Substance: NALOXONE
  2. OXYCODONE [Suspect]
     Active Substance: OXYCODONE
     Indication: PAIN
  3. APAP [Suspect]
     Active Substance: ACETAMINOPHEN
     Indication: PAIN
  4. TRAMADOL. [Suspect]
     Active Substance: TRAMADOL
     Indication: PAIN

REACTIONS (6)
  - Hypoxia [None]
  - Ischaemic cerebral infarction [None]
  - Renal tubular necrosis [None]
  - Cerebrovascular accident [None]
  - Rhabdomyolysis [None]
  - Liver injury [None]
